FAERS Safety Report 26075409 (Version 1)
Quarter: 2025Q4

REPORT INFORMATION
  Report Type: Spontaneous
  Country: US (occurrence: US)
  Receive Date: 20251121
  Receipt Date: 20251121
  Transmission Date: 20260118
  Serious: No
  Sender: VERASTEM
  Company Number: US-VERASTEM-250814US-AFCPK-00459

PATIENT

DRUGS (11)
  1. AVMAPKI FAKZYNJA CO-PACK [Suspect]
     Active Substance: AVUTOMETINIB POTASSIUM\DEFACTINIB HYDROCHLORIDE
     Indication: Ovarian cancer
     Dosage: AVMAPKI 3.2MG ON DAYS 1 AND 4 OF THE FIRST 3 WEEKS OF EACH 4-WEEK CYCLE, FAKZYNJA 200MG ORALLY TWICE
     Route: 048
     Dates: start: 20250810, end: 20250813
  2. AVMAPKI FAKZYNJA CO-PACK [Suspect]
     Active Substance: AVUTOMETINIB POTASSIUM\DEFACTINIB HYDROCHLORIDE
     Dosage: AVMAPKI 3.2MG ON DAYS 1 AND 4 OF THE FIRST 3 WEEKS OF EACH 4-WEEK CYCLE, FAKZYNJA 200MG ORALLY TWICE
     Route: 048
     Dates: start: 20250817, end: 20250821
  3. AVMAPKI FAKZYNJA CO-PACK [Suspect]
     Active Substance: AVUTOMETINIB POTASSIUM\DEFACTINIB HYDROCHLORIDE
     Dosage: AVMAPKI 3.2MG ON DAYS 1 AND 4 OF THE FIRST 3 WEEKS OF EACH 4-WEEK CYCLE, FAKZYNJA 200MG ORALLY TWICE
     Route: 048
     Dates: start: 20250907, end: 20250923
  4. AVMAPKI FAKZYNJA CO-PACK [Suspect]
     Active Substance: AVUTOMETINIB POTASSIUM\DEFACTINIB HYDROCHLORIDE
     Dosage: REDUCED DOSE: 3 AVMAPKI INSTEAD OF 4 ON DAYS 1 AND 4
     Route: 048
     Dates: start: 20251012, end: 20251022
  5. AVMAPKI FAKZYNJA CO-PACK [Suspect]
     Active Substance: AVUTOMETINIB POTASSIUM\DEFACTINIB HYDROCHLORIDE
     Dosage: AVMAPKI 2.4MG BIW, FAKZYNJA 200MG QD
     Route: 048
     Dates: start: 20251026
  6. HYDROCORTISONE [Concomitant]
     Active Substance: HYDROCORTISONE
     Indication: Pruritus
  7. DOXYCYCLINE [Concomitant]
     Active Substance: DOXYCYCLINE
     Indication: Product used for unknown indication
     Dosage: UNK
     Dates: start: 20250506, end: 20250716
  8. IMITREX [Concomitant]
     Active Substance: SUMATRIPTAN SUCCINATE
     Indication: Migraine
     Dosage: UNK
     Dates: start: 20230705
  9. MINOCYCLINE HYDROCHLORIDE [Concomitant]
     Active Substance: MINOCYCLINE HYDROCHLORIDE
     Indication: Prophylaxis
     Dosage: UNK
     Dates: start: 20250810
  10. PROCHLORPERAZINE MALEATE [Concomitant]
     Active Substance: PROCHLORPERAZINE MALEATE
     Indication: Nausea
     Dosage: UNK
     Dates: start: 20250810
  11. ZOFRAN [Concomitant]
     Active Substance: ONDANSETRON HYDROCHLORIDE
     Indication: Nausea
     Dosage: 8 MILLIGRAM

REACTIONS (8)
  - Dyschromatopsia [Recovered/Resolved]
  - Muscular weakness [Unknown]
  - Visual impairment [Recovered/Resolved]
  - Vision blurred [Unknown]
  - Swelling face [Recovered/Resolved]
  - Nausea [Recovered/Resolved]
  - Blood creatine phosphokinase increased [Unknown]
  - Dizziness [Unknown]

NARRATIVE: CASE EVENT DATE: 20250810
